FAERS Safety Report 4612645-4 (Version None)
Quarter: 2005Q1

REPORT INFORMATION
  Report Type: 
  Country: None (occurrence: None)
  Receive Date: 20050316
  Receipt Date: 20050316
  Transmission Date: 20050727
  Serious: Yes (Hospitalization)
  Sender: FDA-Public Use
  Company Number: None

PATIENT
  Age: 57 Year
  Sex: Female
  Weight: 79.8331 kg

DRUGS (14)
  1. SEROQUEL [Suspect]
     Indication: BORDERLINE PERSONALITY DISORDER
     Dosage: 300 MG TWICE DAILY ORAL
     Route: 048
     Dates: start: 19990801, end: 20050311
  2. SEROQUEL [Suspect]
     Indication: SCHIZOAFFECTIVE DISORDER
     Dosage: 300 MG TWICE DAILY ORAL
     Route: 048
     Dates: start: 19990801, end: 20050311
  3. SEROQUEL [Suspect]
     Dosage: 200 MG ONCE DAILY OROPHARING
     Route: 049
  4. ALBUTEROL [Concomitant]
  5. MULTI-VITAMIN [Concomitant]
  6. CELEXA [Concomitant]
  7. PREVACID [Concomitant]
  8. ZYRTEC [Concomitant]
  9. ACTIGALL [Concomitant]
  10. LIPITOR [Concomitant]
  11. ADVAIR DISKUS 100/50 [Concomitant]
  12. WELLBUTRIN SR [Concomitant]
  13. CLONAZEPAM [Concomitant]
  14. TRAZODONE HCL [Concomitant]

REACTIONS (1)
  - PARKINSONISM [None]
